FAERS Safety Report 20106284 (Version 1)
Quarter: 2021Q4

REPORT INFORMATION
  Report Type: Spontaneous
  Country: FR (occurrence: FR)
  Receive Date: 20211124
  Receipt Date: 20211124
  Transmission Date: 20220303
  Serious: Yes (Other)
  Sender: FDA-Public Use
  Company Number: FR-ABBVIE-21K-056-4173262-00

PATIENT
  Age: 45 Year
  Sex: Male

DRUGS (5)
  1. VALPROATE SODIUM [Suspect]
     Active Substance: VALPROATE SODIUM
     Indication: Suicide attempt
     Route: 048
     Dates: start: 20171016, end: 20171016
  2. CLOBAZAM [Suspect]
     Active Substance: CLOBAZAM
     Indication: Suicide attempt
     Route: 048
     Dates: start: 20171016, end: 20171016
  3. IMOVANE [Suspect]
     Active Substance: ZOPICLONE
     Indication: Suicide attempt
     Dosage: TOTAL
     Route: 048
     Dates: start: 20171016, end: 20171016
  4. ZOLPIDEM TARTRATE [Suspect]
     Active Substance: ZOLPIDEM TARTRATE
     Indication: Suicide attempt
     Dosage: TOTAL
     Route: 048
     Dates: start: 20171016, end: 20171016
  5. OXAZEPAM [Suspect]
     Active Substance: OXAZEPAM
     Indication: Suicide attempt
     Dosage: TOTAL
     Route: 048
     Dates: start: 20171016, end: 20171016

REACTIONS (2)
  - Hyperkalaemia [Recovered/Resolved]
  - Toxicity to various agents [Recovered/Resolved]

NARRATIVE: CASE EVENT DATE: 20171016
